FAERS Safety Report 10066313 (Version 1)
Quarter: 2014Q2

REPORT INFORMATION
  Report Type: Spontaneous
  Country: DE (occurrence: DE)
  Receive Date: 20140408
  Receipt Date: 20140408
  Transmission Date: 20141212
  Serious: Yes (Death, Hospitalization)
  Sender: FDA-Public Use
  Company Number: DE-TEVA-473574GER

PATIENT
  Sex: Female

DRUGS (1)
  1. LOPERAMID-RATIOPHARM 2 MG FILMTABLETTEN [Suspect]
     Indication: IRRITABLE BOWEL SYNDROME
     Route: 048

REACTIONS (4)
  - Ventricular fibrillation [Fatal]
  - Carditis [Fatal]
  - Electrolyte imbalance [Unknown]
  - Hepatic enzyme increased [Unknown]
